FAERS Safety Report 9236665 (Version 1)
Quarter: 2013Q2

REPORT INFORMATION
  Report Type: Spontaneous
  Country: US (occurrence: None)
  Receive Date: 20130415
  Receipt Date: 20130415
  Transmission Date: 20140414
  Serious: Yes (Death)
  Sender: FDA-Public Use
  Company Number: UTC-031326

PATIENT
  Age: 64 Year
  Sex: Female
  Weight: 97.7 kg

DRUGS (2)
  1. TYVASO [Suspect]
     Indication: PULMONARY ARTERIAL HYPERTENSION
     Dosage: 18 TO 54 MICROGRAMS (4 IN 1 D), INHALATION
     Route: 055
     Dates: start: 20130108
  2. REVATIO [Suspect]

REACTIONS (1)
  - Death [None]
